FAERS Safety Report 20940639 (Version 3)
Quarter: 2022Q4

REPORT INFORMATION
  Report Type: Report from Study
  Country: CN (occurrence: CN)
  Receive Date: 20220609
  Receipt Date: 20221012
  Transmission Date: 20230113
  Serious: Yes (Hospitalization)
  Sender: FDA-Public Use
  Company Number: CN-BAYER-2022A079398

PATIENT
  Age: 56 Year
  Sex: Male
  Weight: 77 kg

DRUGS (32)
  1. RIVAROXABAN [Suspect]
     Active Substance: RIVAROXABAN
     Indication: Peripheral arterial occlusive disease
     Dosage: 2.5 MG, BID
     Route: 048
     Dates: start: 20210914, end: 20220325
  2. RIVAROXABAN [Suspect]
     Active Substance: RIVAROXABAN
     Dosage: 2.5 MG, BID
     Route: 048
     Dates: start: 20220402
  3. ASPIRIN [Suspect]
     Active Substance: ASPIRIN
     Indication: Peripheral arterial occlusive disease
     Dosage: 100 MG, QD
     Route: 065
     Dates: start: 20190111
  4. CLOPIDOGREL [Concomitant]
     Active Substance: CLOPIDOGREL BISULFATE
     Indication: Antiplatelet therapy
     Dosage: UNK UNK, QD
     Dates: start: 20190130, end: 20210913
  5. CLOPIDOGREL [Concomitant]
     Active Substance: CLOPIDOGREL BISULFATE
     Indication: Antiplatelet therapy
     Dosage: UNK UNK, QD
     Dates: start: 20220325
  6. LEVAMLODIPINE BESYLATE [Concomitant]
     Active Substance: LEVAMLODIPINE BESYLATE
     Dosage: 2.5 MG, QD
     Dates: start: 2016
  7. ATORVASTATIN CALCIUM [Concomitant]
     Active Substance: ATORVASTATIN CALCIUM
     Dosage: 20 MG, QD
     Dates: start: 20190111
  8. ACARBOSE [Concomitant]
     Active Substance: ACARBOSE
     Dosage: 100 MG, BID
     Dates: start: 20190121
  9. METHYLCOBALAMIN [Concomitant]
     Active Substance: METHYLCOBALAMIN
     Dosage: 500 UG, TID
     Dates: start: 20190121
  10. NADROPARIN CALCIUM [Concomitant]
     Active Substance: NADROPARIN CALCIUM
     Dosage: 4100 IU, QD
     Dates: start: 20210526, end: 20210527
  11. NADROPARIN CALCIUM [Concomitant]
     Active Substance: NADROPARIN CALCIUM
     Dosage: 6150 IU, QD
     Dates: start: 20220402, end: 20220402
  12. PANTOPRAZOLE SODIUM [PANTOPRAZOLE SODIUM SESQUIHYDRATE] [Concomitant]
     Dosage: 80 MG, BID
     Dates: start: 20210519, end: 20210527
  13. PAPAVERINE [Concomitant]
     Active Substance: PAPAVERINE
     Dosage: 60 MG, BID
     Dates: start: 20210519, end: 20210527
  14. PAPAVERINE [Concomitant]
     Active Substance: PAPAVERINE
     Dosage: 30 MG, TID
     Dates: start: 20220402, end: 20220406
  15. INSULIN NOS [Concomitant]
     Active Substance: INSULIN NOS
     Dosage: 4 IU, QD
     Dates: start: 20210519, end: 20210527
  16. HERBALS [Concomitant]
     Active Substance: HERBALS
     Dosage: 200 MG, QD
     Dates: start: 20210519, end: 20210527
  17. ALPROSTADIL [Concomitant]
     Active Substance: ALPROSTADIL
     Dosage: 10 UG, QD
     Dates: start: 20210519, end: 20210527
  18. CEFOTIAM [Concomitant]
     Active Substance: CEFOTIAM
     Dosage: 1 G, BID
     Dates: start: 20220325, end: 20220401
  19. CEFOTIAM [Concomitant]
     Active Substance: CEFOTIAM
     Dosage: 1 G, BID
     Dates: start: 20220401, end: 20220406
  20. CIPROFLOXACIN LACTATE AND SODIUM CHLORIDE [Concomitant]
     Dosage: 200 MG, BID
     Dates: start: 20220401, end: 20220406
  21. PAEONOL [Concomitant]
     Dosage: 40 ML, BID
     Dates: start: 20220325, end: 20220406
  22. UBIDECARENONE [Concomitant]
     Active Substance: UBIDECARENONE
     Dosage: 10 MG, TID
     Dates: start: 20220402
  23. FLURBIPROFEN AXETIL [Concomitant]
     Active Substance: FLURBIPROFEN AXETIL
     Dosage: 50 MG
     Dates: start: 20220326, end: 20220326
  24. FENTANYL [Concomitant]
     Active Substance: FENTANYL
     Dosage: 4.2 MG
     Dates: start: 20220326, end: 20220326
  25. CODEINE [Concomitant]
     Active Substance: CODEINE
     Dosage: 500 MG, PRN
     Dates: start: 20220326, end: 20220406
  26. INSULIN ASPART [Concomitant]
     Active Substance: INSULIN ASPART
     Dosage: 4 IU, PRN
     Dates: start: 20220328, end: 20220406
  27. PETHIDINE [PETHIDINE HYDROCHLORIDE] [Concomitant]
     Dosage: 50 MG
     Dates: start: 20220402, end: 20220402
  28. HERBALS [Concomitant]
     Active Substance: HERBALS
     Dosage: 40 ML, BID
     Dates: start: 20220325, end: 20220406
  29. PAPAVERINE HYDROCHLORIDE [Concomitant]
     Active Substance: PAPAVERINE HYDROCHLORIDE
     Dosage: 30 MG, PRN
     Dates: start: 20220402, end: 20220402
  30. PAPAVERINE HYDROCHLORIDE [Concomitant]
     Active Substance: PAPAVERINE HYDROCHLORIDE
     Dosage: 30 MG, TID
     Dates: start: 20220402, end: 20220406
  31. ACETAMINOPHEN\DIHYDROCODEINE BITARTRATE [Concomitant]
     Active Substance: ACETAMINOPHEN\DIHYDROCODEINE BITARTRATE
     Dosage: 500 MG, PRN
     Dates: start: 20220326, end: 20220406
  32. BERAPROST SODIUM [Concomitant]
     Active Substance: BERAPROST SODIUM
     Indication: Antiplatelet therapy
     Dosage: 40 UG, BID
     Dates: start: 20220406

REACTIONS (1)
  - Peripheral arterial occlusive disease [Recovered/Resolved with Sequelae]

NARRATIVE: CASE EVENT DATE: 20220325
